FAERS Safety Report 18599617 (Version 1)
Quarter: 2020Q4

REPORT INFORMATION
  Report Type: Spontaneous
  Country: US (occurrence: US)
  Receive Date: 20201210
  Receipt Date: 20201210
  Transmission Date: 20210114
  Serious: No
  Sender: FDA-Public Use
  Company Number: US-ELI_LILLY_AND_COMPANY-US202012000603

PATIENT
  Sex: Female

DRUGS (6)
  1. PANTOPRAZOLE [Concomitant]
     Active Substance: PANTOPRAZOLE
     Dosage: 40 MG, UNKNOWN
  2. RETEVMO [Suspect]
     Active Substance: SELPERCATINIB
     Dosage: 80 UNK
     Route: 065
  3. RETEVMO [Suspect]
     Active Substance: SELPERCATINIB
     Dosage: 40 UNK
     Route: 065
  4. DOXYCYCLINE. [Concomitant]
     Active Substance: DOXYCYCLINE
     Dosage: 100 MG, UNKNOWN
  5. METRONIDAZOLE. [Concomitant]
     Active Substance: METRONIDAZOLE
  6. RETEVMO [Suspect]
     Active Substance: SELPERCATINIB
     Indication: LUNG NEOPLASM MALIGNANT
     Dosage: 40 MG, BID
     Route: 065
     Dates: start: 202009

REACTIONS (11)
  - Diarrhoea [Unknown]
  - Pyrexia [Unknown]
  - Deafness [Unknown]
  - Palpitations [Unknown]
  - Memory impairment [Unknown]
  - Cyst [Unknown]
  - Chest pain [Unknown]
  - Swelling [Unknown]
  - Proctalgia [Unknown]
  - Visual impairment [Unknown]
  - Paraesthesia [Unknown]
